FAERS Safety Report 13914040 (Version 1)
Quarter: 2017Q3

REPORT INFORMATION
  Report Type: Spontaneous
  Country: US (occurrence: US)
  Receive Date: 20170828
  Receipt Date: 20170828
  Transmission Date: 20171127
  Serious: No
  Sender: FDA-Public Use
  Company Number: US-ROCHE-1140852

PATIENT
  Age: 17 Year
  Sex: Female

DRUGS (16)
  1. NUTROPIN [Suspect]
     Active Substance: SOMATROPIN
     Indication: BLOOD CORTICOTROPHIN DECREASED
  2. CODEINE [Concomitant]
     Active Substance: CODEINE
  3. RANITIDINE. [Concomitant]
     Active Substance: RANITIDINE
  4. VIOXX [Concomitant]
     Active Substance: ROFECOXIB
  5. NUTROPIN [Suspect]
     Active Substance: SOMATROPIN
     Indication: NOONAN SYNDROME
     Route: 058
     Dates: start: 19980222
  6. MAALOX (CALCIUM CARBONATE) [Concomitant]
  7. NUTROPIN [Suspect]
     Active Substance: SOMATROPIN
     Indication: GLOMERULONEPHRITIS MEMBRANOPROLIFERATIVE
  8. ACIDOPHILUS [Concomitant]
     Active Substance: LACTOBACILLUS ACIDOPHILUS
  9. ALBUTEROL INHALER [Concomitant]
     Active Substance: ALBUTEROL
  10. CIPRO [Concomitant]
     Active Substance: CIPROFLOXACIN HYDROCHLORIDE
  11. NUTROPIN [Suspect]
     Active Substance: SOMATROPIN
     Indication: GROWTH HORMONE DEFICIENCY
  12. CLARITIN [Concomitant]
     Active Substance: LORATADINE
  13. TYLENOL [Concomitant]
     Active Substance: ACETAMINOPHEN
  14. CLARITIN [Concomitant]
     Active Substance: LORATADINE
  15. PREDNISONE. [Concomitant]
     Active Substance: PREDNISONE
  16. CORTEF [Concomitant]
     Active Substance: HYDROCORTISONE

REACTIONS (6)
  - Vision blurred [Unknown]
  - Tendonitis [Unknown]
  - Decreased appetite [Unknown]
  - Headache [Unknown]
  - Dyspnoea [Unknown]
  - Injection site bruising [Unknown]

NARRATIVE: CASE EVENT DATE: 20010627
